FAERS Safety Report 5229523-2 (Version None)
Quarter: 2007Q1

REPORT INFORMATION
  Report Type: 
  Country: None (occurrence: None)
  Receive Date: 20070201
  Receipt Date: 20070119
  Transmission Date: 20070707
  Serious: Yes (Death, Other)
  Sender: FDA-Public Use
  Company Number: 2007US-05528

PATIENT
  Age: 3 Month
  Sex: Male

DRUGS (3)
  1. PSEUDOEPHEDRINE HCL [Suspect]
     Indication: NASAL CONGESTION
     Dosage: ORAL
     Route: 048
  2. DOXYLAMINE [Concomitant]
  3. ACETAMINOPHEN/PSEUDOEPHEDRINE HCI/DEXTROMETHORPHAN HBR (DEXTROMETHORPH [Concomitant]

REACTIONS (3)
  - DRUG TOXICITY [None]
  - ENCEPHALOPATHY [None]
  - TIBIA FRACTURE [None]
